FAERS Safety Report 6105063-3 (Version None)
Quarter: 2009Q1

REPORT INFORMATION
  Report Type: 
  Country: None (occurrence: None)
  Receive Date: 20090304
  Receipt Date: 20090218
  Transmission Date: 20090719
  Serious: Yes (Hospitalization)
  Sender: FDA-Public Use
  Company Number: 231775K08USA

PATIENT
  Age: 47 Year
  Sex: Female

DRUGS (16)
  1. REBIF [Suspect]
     Indication: MULTIPLE SCLEROSIS
     Dosage: 8.8 MCG, 3 IN 1 WEEKS, SUBCUTANEOUS, 44 MCG, 3 IN 1 WEEKS, SUBCUTANEOUS, NOT REPORTED
     Route: 058
     Dates: start: 20081102, end: 20080101
  2. REBIF [Suspect]
     Indication: MULTIPLE SCLEROSIS
     Dosage: 8.8 MCG, 3 IN 1 WEEKS, SUBCUTANEOUS, 44 MCG, 3 IN 1 WEEKS, SUBCUTANEOUS, NOT REPORTED
     Route: 058
     Dates: start: 20080101, end: 20081101
  3. REBIF [Suspect]
     Indication: MULTIPLE SCLEROSIS
     Dosage: 8.8 MCG, 3 IN 1 WEEKS, SUBCUTANEOUS, 44 MCG, 3 IN 1 WEEKS, SUBCUTANEOUS, NOT REPORTED
     Route: 058
     Dates: start: 20090101
  4. METFORMIN HCL [Concomitant]
  5. GLIPIZIDE [Concomitant]
  6. LYRICA [Concomitant]
  7. ATACAND [Concomitant]
  8. NEXIUM [Concomitant]
  9. ZYPREXA [Concomitant]
  10. LAMICTAL [Concomitant]
  11. VISTARIL CAP [Concomitant]
  12. LORTAB (VICODIN) [Concomitant]
  13. ZANAFLEX [Concomitant]
  14. ALLEGRA-D (ALLEGRA-D) [Concomitant]
  15. LIPITOR [Concomitant]
  16. LANTUS [Concomitant]

REACTIONS (15)
  - ALANINE AMINOTRANSFERASE INCREASED [None]
  - ANAEMIA OF CHRONIC DISEASE [None]
  - ANION GAP INCREASED [None]
  - ASPARTATE AMINOTRANSFERASE INCREASED [None]
  - BLOOD ALBUMIN DECREASED [None]
  - BLOOD ALKALINE PHOSPHATASE INCREASED [None]
  - BLOOD CALCIUM DECREASED [None]
  - BLOOD GLUCOSE INCREASED [None]
  - CARBON DIOXIDE DECREASED [None]
  - ILEUS [None]
  - LOSS OF CONSCIOUSNESS [None]
  - PAIN [None]
  - RENAL FAILURE [None]
  - URINE BILIRUBIN INCREASED [None]
  - URINE KETONE BODY PRESENT [None]
